FAERS Safety Report 4317793-4 (Version None)
Quarter: 2004Q1

REPORT INFORMATION
  Report Type: 
  Country: None (occurrence: None)
  Receive Date: 20040316
  Receipt Date: 20040308
  Transmission Date: 20041129
  Serious: Yes (Death)
  Sender: FDA-Public Use
  Company Number: PHNU2004DE01081

PATIENT
  Age: 56 Year
  Sex: Female

DRUGS (10)
  1. CO-DIOVAN [Suspect]
     Indication: HYPERTENSION
     Dosage: 1 DF, BID
     Route: 048
  2. DIGITOXIN TAB [Suspect]
     Indication: ARRHYTHMIA
     Dosage: .07 MG, QD
     Route: 048
  3. DILATREND [Suspect]
     Indication: HYPERTENSION
     Dosage: 12.5 MG, BID
     Route: 048
  4. PHYSIOTENS ^GIULINI^ [Suspect]
     Indication: HYPERTENSION
     Dosage: .3 MG, QD
     Route: 048
  5. AQUAPHOR [Concomitant]
     Indication: HYPERTENSION
     Dosage: 40 MG, QD
     Route: 048
  6. CARMEN [Concomitant]
     Indication: HYPERTENSION
     Dosage: 10 MG, QD
     Route: 048
  7. EZETROL [Concomitant]
     Indication: HYPERCHOLESTEROLAEMIA
     Dosage: 10 MG, QD
     Route: 048
     Dates: start: 20030101
  8. FALITHROM ^HEXAL^ [Concomitant]
     Indication: ATRIAL FIBRILLATION
     Dosage: 3 MG, QD
     Route: 048
  9. PANTOZOL [Concomitant]
     Indication: PROPHYLAXIS AGAINST GASTROINTESTINAL ULCER
     Dosage: 40 MG, BID
     Route: 048
     Dates: start: 20020101
  10. ATORVASTATIN CALCIUM [Concomitant]
     Indication: HYPERLIPIDAEMIA
     Dosage: 20 MG, QD
     Route: 048

REACTIONS (13)
  - ACIDOSIS [None]
  - BRADYCARDIA [None]
  - BUNDLE BRANCH BLOCK LEFT [None]
  - CARDIAC FAILURE [None]
  - COLD SWEAT [None]
  - DRUG INTERACTION [None]
  - DYSPNOEA [None]
  - FEELING ABNORMAL [None]
  - HYPERGLYCAEMIA [None]
  - HYPERKALAEMIA [None]
  - HYPERTENSION [None]
  - METABOLIC ACIDOSIS [None]
  - SHOCK [None]
